FAERS Safety Report 5979918-4 (Version None)
Quarter: 2008Q4

REPORT INFORMATION
  Report Type: 
  Country: None (occurrence: None)
  Receive Date: 20081205
  Receipt Date: 20081126
  Transmission Date: 20090506
  Serious: Yes (Other)
  Sender: FDA-Public Use
  Company Number: CA-BAXTER-2008BH013134

PATIENT
  Sex: Female

DRUGS (2)
  1. FEIBA VH IMMUNO [Suspect]
     Indication: FACTOR VIII DEFICIENCY
     Route: 065
     Dates: start: 20081001, end: 20081101
  2. FEIBA VH IMMUNO [Suspect]

REACTIONS (1)
  - DISSEMINATED INTRAVASCULAR COAGULATION [None]
